FAERS Safety Report 4885044-8 (Version None)
Quarter: 2006Q1

REPORT INFORMATION
  Report Type: 
  Country: None (occurrence: None)
  Receive Date: 20060119
  Receipt Date: 20051208
  Transmission Date: 20060701
  Serious: Yes (Hospitalization, Other)
  Sender: FDA-Public Use
  Company Number: US-MERCK-0512USA01607

PATIENT
  Age: 68 Year
  Sex: Female
  Weight: 114 kg

DRUGS (15)
  1. VIOXX [Suspect]
     Indication: PAIN IN EXTREMITY
     Route: 048
     Dates: start: 20030101, end: 20031110
  2. ZOCOR [Concomitant]
     Route: 065
  3. COLACE [Concomitant]
     Route: 065
  4. PRINIVIL [Concomitant]
     Route: 065
  5. PROTONIX [Concomitant]
     Route: 065
  6. PREMARIN [Concomitant]
     Route: 065
  7. DEMADEX [Concomitant]
     Route: 065
  8. K-DUR 10 [Concomitant]
     Route: 065
  9. ACTOS [Concomitant]
     Route: 065
  10. NOVOLIN [Concomitant]
     Route: 065
  11. ZESTRIL [Concomitant]
     Route: 065
  12. TOPROL-XL [Concomitant]
     Route: 065
  13. INSULIN [Concomitant]
     Route: 065
  14. MIRALAX [Concomitant]
     Route: 065
  15. PAXIL [Concomitant]
     Route: 065

REACTIONS (2)
  - ISCHAEMIC STROKE [None]
  - MYOCARDIAL INFARCTION [None]
